FAERS Safety Report 9419816 (Version 1)
Quarter: 2013Q3

REPORT INFORMATION
  Report Type: Spontaneous
  Country: US (occurrence: None)
  Receive Date: 20130723
  Receipt Date: 20130723
  Transmission Date: 20140515
  Serious: Yes (Other)
  Sender: FDA-Public Use
  Company Number: JPI-P-033630

PATIENT
  Age: 75 Year
  Sex: Male

DRUGS (1)
  1. XYREM [Suspect]
     Indication: CATAPLEXY
     Route: 048
     Dates: start: 20020930

REACTIONS (7)
  - Dementia [None]
  - Cataplexy [None]
  - Fall [None]
  - Contusion [None]
  - Laceration [None]
  - Head injury [None]
  - Haemorrhage [None]
